FAERS Safety Report 15522354 (Version 1)
Quarter: 2018Q4

REPORT INFORMATION
  Report Type: Spontaneous
  Country: US (occurrence: US)
  Receive Date: 20181012
  Receipt Date: 20181012
  Transmission Date: 20190205
  Serious: No
  Sender: FDA-Public Use
  Company Number: None

PATIENT
  Age: 22 Year
  Sex: Female

DRUGS (1)
  1. COPAXONE [Suspect]
     Active Substance: GLATIRAMER ACETATE
     Dates: start: 20181011

REACTIONS (4)
  - Wrong technique in product usage process [None]
  - Injection site pain [None]
  - Muscle twitching [None]
  - Dyspnoea [None]

NARRATIVE: CASE EVENT DATE: 20181001
